FAERS Safety Report 8934676 (Version 2)
Quarter: 2013Q1

REPORT INFORMATION
  Report Type: Report from Study
  Country: CA (occurrence: CA)
  Receive Date: 20121129
  Receipt Date: 20130122
  Transmission Date: 20140127
  Serious: Yes (Hospitalization)
  Sender: FDA-Public Use
  Company Number: CA-PFIZER INC-2012297239

PATIENT
  Age: 52 Year
  Sex: Female

DRUGS (14)
  1. BLINDED NO SUBJECT DRUG [Suspect]
     Indication: SMOKING CESSATION THERAPY
     Dosage: UNK MG, 1X/DAY
     Route: 048
     Dates: start: 20121107, end: 20121109
  2. BLINDED PLACEBO [Suspect]
     Indication: SMOKING CESSATION THERAPY
     Dosage: UNK MG, 1X/DAY
     Route: 048
     Dates: start: 20121107, end: 20121109
  3. BLINDED VARENICLINE TARTRATE [Suspect]
     Indication: SMOKING CESSATION THERAPY
     Dosage: UNK MG, 1X/DAY
     Route: 048
     Dates: start: 20121107, end: 20121109
  4. BLINDED NO SUBJECT DRUG [Suspect]
     Dosage: UNK MG, 2X/DAY
     Route: 048
     Dates: start: 20121110, end: 20121113
  5. BLINDED PLACEBO [Suspect]
     Dosage: UNK MG, 2X/DAY
     Route: 048
     Dates: start: 20121110, end: 20121113
  6. BLINDED VARENICLINE TARTRATE [Suspect]
     Dosage: UNK MG, 2X/DAY
     Route: 048
     Dates: start: 20121110, end: 20121113
  7. BLINDED NO SUBJECT DRUG [Suspect]
     Dosage: 1.0 MG, 2X/DAY
     Route: 048
     Dates: start: 20121114
  8. BLINDED PLACEBO [Suspect]
     Dosage: 1.0 MG, 2X/DAY
     Route: 048
     Dates: start: 20121114
  9. BLINDED VARENICLINE TARTRATE [Suspect]
     Dosage: 1.0 MG, 2X/DAY
     Route: 048
     Dates: start: 20121114
  10. PRAVASTATIN [Concomitant]
     Indication: ACUTE CORONARY SYNDROME
     Dosage: UNK
     Route: 048
     Dates: start: 20121103
  11. LISINOPRIL [Concomitant]
     Indication: ACUTE CORONARY SYNDROME
     Dosage: UNK
     Route: 048
     Dates: start: 20121103
  12. ACETYLSALICYLIC ACID [Concomitant]
     Indication: ACUTE CORONARY SYNDROME
     Dosage: UNK
     Route: 048
     Dates: start: 20121103
  13. METOPROLOL [Concomitant]
     Indication: ACUTE CORONARY SYNDROME
     Dosage: UNK
     Route: 048
     Dates: start: 20121103
  14. CLOPIDOGREL [Concomitant]
     Indication: ACUTE CORONARY SYNDROME
     Dosage: UNK
     Route: 048
     Dates: start: 20121103

REACTIONS (1)
  - Angina unstable [Recovered/Resolved]
